FAERS Safety Report 16155080 (Version 11)
Quarter: 2020Q3

REPORT INFORMATION
  Report Type: Report from Study
  Country: US (occurrence: US)
  Receive Date: 20190403
  Receipt Date: 20200806
  Transmission Date: 20201102
  Serious: Yes (Other)
  Sender: FDA-Public Use
  Company Number: US-ACTELION-A-NJ2019-188563

PATIENT
  Age: 73 Year
  Sex: Male
  Weight: 81.63 kg

DRUGS (2)
  1. AMLODIPINE [Concomitant]
     Active Substance: AMLODIPINE BESYLATE
  2. OPSUMIT [Suspect]
     Active Substance: MACITENTAN
     Indication: PULMONARY ARTERIAL HYPERTENSION
     Dosage: 10 MG, QD
     Route: 048

REACTIONS (39)
  - Abdominal distension [Unknown]
  - Chest pain [Unknown]
  - Skin tightness [Unknown]
  - Pyrexia [Unknown]
  - Feeling hot [Unknown]
  - Cough [Unknown]
  - Arthritis [Not Recovered/Not Resolved]
  - Pain in extremity [Not Recovered/Not Resolved]
  - Loss of personal independence in daily activities [Unknown]
  - Peripheral swelling [Unknown]
  - Headache [Not Recovered/Not Resolved]
  - Musculoskeletal chest pain [Unknown]
  - Eye disorder [Unknown]
  - Dyspnoea exertional [Not Recovered/Not Resolved]
  - Condition aggravated [Unknown]
  - Dizziness postural [Unknown]
  - Pneumonia [Unknown]
  - Oedema peripheral [Not Recovered/Not Resolved]
  - Arthralgia [Not Recovered/Not Resolved]
  - Fracture pain [Unknown]
  - Seasonal allergy [Unknown]
  - Productive cough [Not Recovered/Not Resolved]
  - Palpitations [Unknown]
  - Dyspnoea [Unknown]
  - Oxygen consumption increased [Unknown]
  - Oedema [Unknown]
  - Breath sounds abnormal [Unknown]
  - Sputum discoloured [Not Recovered/Not Resolved]
  - Joint swelling [Unknown]
  - Tremor [Not Recovered/Not Resolved]
  - Rib fracture [Unknown]
  - Swelling face [Unknown]
  - Balance disorder [Unknown]
  - Neuropathy peripheral [Not Recovered/Not Resolved]
  - Influenza [Unknown]
  - Constipation [Recovered/Resolved]
  - Weight increased [Unknown]
  - Malaise [Unknown]
  - Feeling cold [Unknown]

NARRATIVE: CASE EVENT DATE: 202001
